FAERS Safety Report 5779044-3 (Version None)
Quarter: 2008Q2

REPORT INFORMATION
  Report Type: 
  Country: None (occurrence: None)
  Receive Date: 20080613
  Receipt Date: 20070709
  Transmission Date: 20081010
  Serious: Yes (Other)
  Sender: FDA-Public Use
  Company Number: PHEH2007US09833

PATIENT
  Sex: Male

DRUGS (1)
  1. EXELON [Suspect]

REACTIONS (4)
  - DEPRESSED MOOD [None]
  - DEPRESSION [None]
  - PARANOIA [None]
  - PERSONALITY DISORDER [None]
